FAERS Safety Report 14208491 (Version 1)
Quarter: 2017Q4

REPORT INFORMATION
  Report Type: Spontaneous
  Country: CA (occurrence: CA)
  Receive Date: 20171121
  Receipt Date: 20171121
  Transmission Date: 20180321
  Serious: Yes (Other)
  Sender: FDA-Public Use
  Company Number: CA-MYLANLABS-2017M1073333

PATIENT
  Age: 30 Year
  Sex: Female

DRUGS (4)
  1. SODIUM CHLORIDE. [Suspect]
     Active Substance: SODIUM CHLORIDE
     Indication: HYPERCALCAEMIA
     Dosage: ISOTONIC
     Route: 065
  2. CALCIUM CARBONATE. [Suspect]
     Active Substance: CALCIUM CARBONATE
     Indication: HYPERCALCAEMIA
     Dosage: UNK
     Route: 065
  3. CALCITONIN SALMON MYLAN [Suspect]
     Active Substance: CALCITONIN SALMON
     Indication: HYPERCALCAEMIA
     Dosage: 4 IU/KG, BID
     Route: 065
  4. VITAMIN D                          /00107901/ [Suspect]
     Active Substance: ERGOCALCIFEROL
     Indication: HYPERCALCAEMIA
     Dosage: 1000 IU, UNK
     Route: 065

REACTIONS (4)
  - Diabetes insipidus [Unknown]
  - Normal newborn [Unknown]
  - Blood calcium increased [Unknown]
  - Maternal exposure during pregnancy [Recovered/Resolved]
